FAERS Safety Report 6510470-0 (Version None)
Quarter: 2009Q4

REPORT INFORMATION
  Report Type: 
  Country: None (occurrence: None)
  Receive Date: 20091217
  Receipt Date: 20091207
  Transmission Date: 20100525
  Serious: Yes (Hospitalization)
  Sender: FDA-Public Use
  Company Number: 230145J09BRA

PATIENT
  Age: 48 Year
  Sex: Female

DRUGS (6)
  1. REBIF [Suspect]
     Indication: RELAPSING-REMITTING MULTIPLE SCLEROSIS
     Dosage: 44 MCG, 3 IN 1 WEEKS
     Dates: start: 20030805, end: 20091026
  2. ACETAMINOPHEN [Concomitant]
  3. ASCORBIC ACID [Concomitant]
  4. B COMPLEX (NICOTINAM, W/PYRIDOXI, HCL/RIBOFL./THIAM. HCL) [Concomitant]
  5. CALCIUM(CALCIUM /00751501/) [Concomitant]
  6. RIVOTRIL (CLONAZEPAM) [Concomitant]

REACTIONS (5)
  - BLOOD PRESSURE INCREASED [None]
  - DYSPHAGIA [None]
  - MULTIPLE SCLEROSIS RELAPSE [None]
  - PNEUMONIA ASPIRATION [None]
  - VISUAL IMPAIRMENT [None]
